FAERS Safety Report 7082123-4 (Version None)
Quarter: 2010Q4

REPORT INFORMATION
  Report Type: 
  Country: None (occurrence: None)
  Receive Date: 20101103
  Receipt Date: 20091111
  Transmission Date: 20110411
  Serious: No
  Sender: FDA-Public Use
  Company Number: US-PFIZER INC-2009277852

PATIENT
  Sex: Female

DRUGS (1)
  1. VIBRAMYCIN [Suspect]

REACTIONS (2)
  - NAUSEA [None]
  - VOMITING [None]
